FAERS Safety Report 22657281 (Version 3)
Quarter: 2024Q1

REPORT INFORMATION
  Report Type: Spontaneous
  Country: PT (occurrence: PT)
  Receive Date: 20230630
  Receipt Date: 20240310
  Transmission Date: 20240409
  Serious: Yes (Hospitalization, Other)
  Sender: FDA-Public Use
  Company Number: PT-COSETTE-CP2023PT000132

PATIENT
  Age: 88 Year
  Sex: Female

DRUGS (3)
  1. BENICAR [Suspect]
     Active Substance: OLMESARTAN MEDOXOMIL
     Indication: Essential thrombocythaemia
     Route: 065
  2. BENICAR [Suspect]
     Active Substance: OLMESARTAN MEDOXOMIL
     Indication: Hypertension
  3. METFORMIN HYDROCHLORIDE\VILDAGLIPTIN [Suspect]
     Active Substance: METFORMIN HYDROCHLORIDE\VILDAGLIPTIN
     Indication: Type 2 diabetes mellitus
     Route: 065

REACTIONS (12)
  - Vitamin B12 deficiency [Recovering/Resolving]
  - Anaemia megaloblastic [Recovered/Resolved]
  - Anaemia folate deficiency [Recovering/Resolving]
  - Decreased appetite [Unknown]
  - Folate deficiency [Unknown]
  - Weight decreased [Unknown]
  - Malabsorption [Unknown]
  - Tachycardia [Unknown]
  - Pallor [Unknown]
  - Hypotension [Unknown]
  - Mucosal discolouration [Unknown]
  - Off label use [Unknown]
